FAERS Safety Report 6317494-7 (Version None)
Quarter: 2009Q3

REPORT INFORMATION
  Report Type: 
  Country: None (occurrence: None)
  Receive Date: 20090821
  Receipt Date: 20090813
  Transmission Date: 20100115
  Serious: Yes (Hospitalization, Other)
  Sender: FDA-Public Use
  Company Number: US-JNJFOC-20090804877

PATIENT
  Age: 18 Year
  Sex: Male

DRUGS (6)
  1. RISPERIDONE [Suspect]
     Route: 065
  2. RISPERIDONE [Suspect]
     Indication: DRUG USE FOR UNKNOWN INDICATION
     Route: 065
  3. HALOPERIDOL [Suspect]
     Route: 030
  4. HALOPERIDOL [Suspect]
     Indication: AGITATION
     Route: 030
  5. DIPHENHYDRAMINE HCL [Concomitant]
     Route: 030
  6. DIPHENHYDRAMINE HCL [Concomitant]
     Indication: AGITATION
     Route: 030

REACTIONS (7)
  - AGITATION [None]
  - AKATHISIA [None]
  - BLOOD CREATINE PHOSPHOKINASE INCREASED [None]
  - BODY TEMPERATURE FLUCTUATION [None]
  - DYSTONIA [None]
  - HEART RATE IRREGULAR [None]
  - LABILE BLOOD PRESSURE [None]
